FAERS Safety Report 17223877 (Version 1)
Quarter: 2020Q1

REPORT INFORMATION
  Report Type: Spontaneous
  Country: GB (occurrence: GB)
  Receive Date: 20200102
  Receipt Date: 20200102
  Transmission Date: 20200409
  Serious: Yes (Hospitalization)
  Sender: FDA-Public Use
  Company Number: GB-TEVA-2019-GB-1160385

PATIENT
  Age: 65 Year

DRUGS (3)
  1. THIAMINE. [Concomitant]
     Active Substance: THIAMINE
     Dosage: 300 MG PER DAY
  2. WARFARIN [Suspect]
     Active Substance: WARFARIN
     Indication: PULMONARY EMBOLISM
     Dosage: 6MG MONDAYS 5MG REST OF THE WEEK
     Route: 065
  3. AMLODIPINE [Concomitant]
     Active Substance: AMLODIPINE BESYLATE
     Dosage: 5 MG PER DAY

REACTIONS (3)
  - Haematemesis [Unknown]
  - Melaena [Recovered/Resolved]
  - Gastrointestinal haemorrhage [Unknown]
